FAERS Safety Report 8922647 (Version 1)
Quarter: 2012Q4

REPORT INFORMATION
  Report Type: 
  Country: US (occurrence: US)
  Receive Date: 20121125
  Receipt Date: 20121125
  Transmission Date: 20130627
  Serious: Yes (Other)
  Sender: FDA-Public Use
  Company Number: US-BAYER-2012-121492

PATIENT
  Age: 65 Year
  Sex: Male

DRUGS (13)
  1. AVELOX [Suspect]
     Indication: SINUS INFECTION
     Dosage: 400 mg, UNK
  2. AMOXICILLIN [Concomitant]
  3. PREDNISONE [Concomitant]
  4. ATENOLOL [Concomitant]
  5. BUDESONIDE [Concomitant]
  6. ZOLPIDEM [Concomitant]
  7. TIOTROPIUM [Concomitant]
  8. POTASSIUM CHLORIDE [Concomitant]
  9. XANAX [Concomitant]
  10. NIACIN [Concomitant]
  11. FLUNISOLIDE [Concomitant]
  12. ALBUTEROL [Concomitant]
  13. TRAMADOL [Concomitant]

REACTIONS (8)
  - Chest pain [Not Recovered/Not Resolved]
  - Feeling jittery [Not Recovered/Not Resolved]
  - Hyperhidrosis [Not Recovered/Not Resolved]
  - Pain [Not Recovered/Not Resolved]
  - Headache [Not Recovered/Not Resolved]
  - Tinnitus [Not Recovered/Not Resolved]
  - Gait disturbance [Not Recovered/Not Resolved]
  - Fear of death [Not Recovered/Not Resolved]
